FAERS Safety Report 9299051 (Version 2)
Quarter: 2013Q2

REPORT INFORMATION
  Report Type: Spontaneous
  Country: US (occurrence: US)
  Receive Date: 20130520
  Receipt Date: 20130610
  Transmission Date: 20140414
  Serious: Yes (Death, Other)
  Sender: FDA-Public Use
  Company Number: US-ASTRAZENECA-2013SE34288

PATIENT
  Age: 20658 Day
  Sex: Male
  Weight: 80 kg

DRUGS (6)
  1. LISINOPRIL [Suspect]
     Route: 065
  2. BRILINTA [Suspect]
     Indication: ACUTE CORONARY SYNDROME
     Route: 048
     Dates: start: 20130502
  3. ANGIOMAX [Suspect]
     Dosage: 10.5 CC, DV AND IV INT 24.5 GGTT
     Route: 040
     Dates: start: 20130502, end: 20130502
  4. HEPARIN [Concomitant]
  5. ASA [Concomitant]
     Dates: start: 201305
  6. LIPITOR [Concomitant]

REACTIONS (2)
  - Acute myocardial infarction [Fatal]
  - Cardiogenic shock [Fatal]
